FAERS Safety Report 18759833 (Version 1)
Quarter: 2021Q1

REPORT INFORMATION
  Report Type: Spontaneous
  Country: US (occurrence: US)
  Receive Date: 20210119
  Receipt Date: 20210119
  Transmission Date: 20210419
  Serious: Yes (Hospitalization, Other)
  Sender: FDA-Public Use
  Company Number: US-STANDARD HOMEOPATHIC COMPANY-2105549

PATIENT

DRUGS (4)
  1. HYLAND^S BABY COLIC TABLETS [Suspect]
     Active Substance: HOMEOPATHICS
     Indication: RESTLESSNESS
     Route: 048
  2. HYLAND^S BABY COLIC TABLETS [Suspect]
     Active Substance: HOMEOPATHICS
     Indication: FLATULENCE
     Route: 048
  3. HYLAND^S BABY COLIC TABLETS [Suspect]
     Active Substance: HOMEOPATHICS
     Indication: ABDOMINAL PAIN
     Route: 048
  4. HYLAND^S BABY COLIC TABLETS [Suspect]
     Active Substance: HOMEOPATHICS
     Indication: IRRITABILITY
     Route: 048

REACTIONS (1)
  - Seizure [Unknown]
